FAERS Safety Report 26102595 (Version 1)
Quarter: 2025Q4

REPORT INFORMATION
  Report Type: Report from Study
  Country: US (occurrence: US)
  Receive Date: 20251128
  Receipt Date: 20251128
  Transmission Date: 20260118
  Serious: Yes (Hospitalization)
  Sender: ABBVIE
  Company Number: US-ABBVIE-6566515

PATIENT
  Sex: Male

DRUGS (1)
  1. RISANKIZUMAB [Suspect]
     Active Substance: RISANKIZUMAB
     Indication: Crohn^s disease
     Route: 042
     Dates: start: 202502

REACTIONS (10)
  - Haematological infection [Unknown]
  - Proctalgia [Not Recovered/Not Resolved]
  - Pain [Not Recovered/Not Resolved]
  - Scrotal pain [Not Recovered/Not Resolved]
  - Penile pain [Not Recovered/Not Resolved]
  - Central venous catheterisation [Unknown]
  - Perineal pain [Not Recovered/Not Resolved]
  - Hypoaesthesia [Unknown]
  - Scar [Unknown]
  - Eye disorder [Unknown]

NARRATIVE: CASE EVENT DATE: 20250101
